FAERS Safety Report 9197703 (Version 1)
Quarter: 2013Q1

REPORT INFORMATION
  Report Type: Spontaneous
  Country: US (occurrence: US)
  Receive Date: 20130328
  Receipt Date: 20130328
  Transmission Date: 20140127
  Serious: No
  Sender: FDA-Public Use
  Company Number: US-TEVA-390297USA

PATIENT
  Sex: Male
  Weight: 96.25 kg

DRUGS (5)
  1. QNASL [Suspect]
     Indication: NASAL INFLAMMATION
     Dosage: 160 MICROGRAM DAILY;
     Route: 045
     Dates: start: 20130221, end: 20130303
  2. PREDNISONE [Concomitant]
     Indication: INFLAMMATION
     Dosage: VARIED
     Route: 048
     Dates: start: 20130221, end: 20130301
  3. CEFUROXIME [Concomitant]
     Indication: PHARYNGITIS
     Dosage: 500 MILLIGRAM DAILY;
     Route: 048
     Dates: end: 20130301
  4. LORATADINE [Concomitant]
     Indication: HYPERSENSITIVITY
     Dosage: 5 MILLIGRAM DAILY;
     Route: 048
     Dates: start: 20130222, end: 20130228
  5. MELATONIN [Concomitant]
     Indication: SLEEP DISORDER
     Dosage: 3 MILLIGRAM DAILY;
     Route: 048
     Dates: start: 20130227, end: 20130227

REACTIONS (2)
  - Insomnia [Not Recovered/Not Resolved]
  - Tinnitus [Not Recovered/Not Resolved]
